FAERS Safety Report 6461788-1 (Version None)
Quarter: 2009Q4

REPORT INFORMATION
  Report Type: 
  Country: None (occurrence: None)
  Receive Date: 20091130
  Receipt Date: 20091118
  Transmission Date: 20100525
  Serious: Yes (Hospitalization, Other)
  Sender: FDA-Public Use
  Company Number: PHHY2009JP05457

PATIENT
  Sex: Female
  Weight: 42 kg

DRUGS (5)
  1. ZOMETA [Suspect]
     Indication: METASTASES TO BONE
     Dosage: 4 MG, QMO
     Route: 042
     Dates: start: 20060606, end: 20061226
  2. ZOMETA [Suspect]
     Dosage: 4 MG, QMO
     Route: 042
     Dates: start: 20070313, end: 20070703
  3. AREDIA [Suspect]
     Indication: METASTASES TO BONE
     Dosage: 30 MG AT INTERVALS OF 4 WEEKS
     Route: 042
     Dates: start: 20040901, end: 20060523
  4. TAMOXIFEN CITRATE [Concomitant]
     Dosage: 20 MG/DAY
     Route: 048
     Dates: start: 20010701, end: 20011201
  5. TAMOXIFEN CITRATE [Concomitant]
     Dosage: 20 MG/DAY
     Route: 048
     Dates: start: 20040901

REACTIONS (16)
  - BONE DISORDER [None]
  - EXCESSIVE GRANULATION TISSUE [None]
  - FISTULA [None]
  - FUNGAL INFECTION [None]
  - GASTRIC ULCER [None]
  - GINGIVAL ERYTHEMA [None]
  - GINGIVAL PAIN [None]
  - GINGIVAL SWELLING [None]
  - OSTEONECROSIS [None]
  - OSTEOSCLEROSIS [None]
  - PAIN IN JAW [None]
  - PERIODONTITIS [None]
  - PURULENT DISCHARGE [None]
  - RENAL IMPAIRMENT [None]
  - TOOTH EXTRACTION [None]
  - TOOTHACHE [None]
